FAERS Safety Report 13969093 (Version 1)
Quarter: 2017Q3

REPORT INFORMATION
  Report Type: Spontaneous
  Country: US (occurrence: US)
  Receive Date: 20170914
  Receipt Date: 20170914
  Transmission Date: 20171128
  Serious: No
  Sender: FDA-Public Use
  Company Number: US-ASTELLAS-2016US046109

PATIENT
  Age: 78 Year
  Sex: Male

DRUGS (2)
  1. XTANDI [Suspect]
     Active Substance: ENZALUTAMIDE
     Indication: PROSTATE CANCER
     Route: 048
     Dates: start: 20160721, end: 20170223
  2. XTANDI [Suspect]
     Active Substance: ENZALUTAMIDE
     Route: 048
     Dates: end: 20170310

REACTIONS (6)
  - Muscular weakness [Unknown]
  - Oedema peripheral [Unknown]
  - Diarrhoea [Unknown]
  - Oedema [Unknown]
  - Fatigue [Unknown]
  - Fatigue [Unknown]

NARRATIVE: CASE EVENT DATE: 20160721
